FAERS Safety Report 5917482-6 (Version None)
Quarter: 2008Q4

REPORT INFORMATION
  Report Type: 
  Country: None (occurrence: None)
  Receive Date: 20081009
  Receipt Date: 20080930
  Transmission Date: 20090506
  Serious: Yes (Other)
  Sender: FDA-Public Use
  Company Number: ENTC2008-0314

PATIENT
  Age: 62 Year
  Sex: Male

DRUGS (4)
  1. LEVODOPA-CARBIDOPA-ENTACAPONE (LEVODOPA, CARBIDOPA, ENTACAPONE) [Suspect]
     Indication: PARKINSON'S DISEASE
     Dosage: 600/150/200 MG QD
     Dates: start: 20070101
  2. BORNAPRINE [Concomitant]
  3. CABERGOLINE [Concomitant]
  4. LEVODOPA-BENSERAZIDE [Concomitant]

REACTIONS (7)
  - BRADYKINESIA [None]
  - COGWHEEL RIGIDITY [None]
  - DRUG EFFECT DECREASED [None]
  - GAIT DISTURBANCE [None]
  - PARKINSONIAN REST TREMOR [None]
  - PLEUROTHOTONUS [None]
  - TREMOR [None]
